FAERS Safety Report 8988263 (Version 4)
Quarter: 2014Q1

REPORT INFORMATION
  Report Type: Report from Study
  Country: IT (occurrence: IT)
  Receive Date: 20121227
  Receipt Date: 20140129
  Transmission Date: 20141002
  Serious: Yes (Other)
  Sender: FDA-Public Use
  Company Number: IT-ROCHE-1170197

PATIENT
  Age: 79 Year
  Sex: Male
  Weight: 70 kg

DRUGS (11)
  1. VISMODEGIB [Suspect]
     Indication: BASAL CELL CARCINOMA
     Dosage: DATE OF LAST DOSE PRIOR TO SAE 11/DEC/2012
     Route: 048
     Dates: start: 20120919, end: 20121212
  2. VISMODEGIB [Suspect]
     Route: 048
  3. ESKIM [Concomitant]
     Indication: DYSLIPIDAEMIA
     Dosage: 1 CP
     Route: 065
     Dates: start: 201004
  4. CRESTOR [Concomitant]
     Indication: DYSLIPIDAEMIA
     Route: 065
     Dates: start: 201010
  5. CONDIUREN [Concomitant]
     Indication: HYPERTENSION
     Route: 065
     Dates: start: 201010
  6. ZANIDIP [Concomitant]
     Indication: HYPERTENSION
     Route: 065
     Dates: start: 201010
  7. SELOKEN [Concomitant]
     Indication: HYPERTENSION
     Route: 065
     Dates: start: 201010
  8. ASCRIPTIN (ITALY) [Concomitant]
     Route: 065
     Dates: start: 201004
  9. LANSOPRAZOLE [Concomitant]
     Indication: PROPHYLAXIS
     Route: 065
     Dates: start: 20120919
  10. ZIRTEC [Concomitant]
     Route: 065
     Dates: start: 20121114
  11. CARDIOASPIRIN [Concomitant]
     Route: 065
     Dates: start: 201004

REACTIONS (1)
  - Dermatitis [Recovered/Resolved]
